FAERS Safety Report 8785413 (Version 2)
Quarter: 2012Q4

REPORT INFORMATION
  Report Type: 
  Country: US (occurrence: US)
  Receive Date: 20120914
  Receipt Date: 20121018
  Transmission Date: 20130627
  Serious: No
  Sender: FDA-Public Use
  Company Number: US-PFIZER INC-2012225351

PATIENT
  Age: 75 Year
  Sex: Male
  Weight: 109 kg

DRUGS (2)
  1. CELEBREX [Suspect]
     Indication: PAIN
     Dosage: 200 mg, 1x/day
     Dates: start: 201208, end: 201208
  2. CELEBREX [Suspect]
     Indication: ARTHRITIS

REACTIONS (3)
  - Abdominal pain upper [Recovered/Resolved]
  - Nausea [Recovered/Resolved]
  - Faeces discoloured [Recovered/Resolved]
